FAERS Safety Report 7427859-8 (Version None)
Quarter: 2011Q2

REPORT INFORMATION
  Report Type: 
  Country: None (occurrence: None)
  Receive Date: 20110412
  Receipt Date: 20110328
  Transmission Date: 20111010
  Serious: Yes (Hospitalization)
  Sender: FDA-Public Use
  Company Number: 840782

PATIENT
  Age: 49 Year
  Sex: Female

DRUGS (6)
  1. (VITAMIN C /00008001/) [Concomitant]
  2. METHOTREXATE [Suspect]
     Indication: PRODUCT USED FOR UNKNOWN INDICATION
     Dosage: 25MG, WEEKLY, SUBCUTANEOUS
     Route: 058
  3. PLAQUENIL [Concomitant]
  4. VITAMIN A [Concomitant]
  5. (ABATACEPT) [Suspect]
     Indication: RHEUMATOID ARTHRITIS
     Dosage: 1000MG, 1/4 WEEK, INTRAVENOUS
     Route: 042
  6. FOLIC ACID [Concomitant]

REACTIONS (5)
  - DRUG INEFFECTIVE [None]
  - RHEUMATOID ARTHRITIS [None]
  - DISEASE PROGRESSION [None]
  - LOBAR PNEUMONIA [None]
  - CONDITION AGGRAVATED [None]
